FAERS Safety Report 5739477-8 (Version None)
Quarter: 2008Q2

REPORT INFORMATION
  Report Type: 
  Country: None (occurrence: None)
  Receive Date: 20080515
  Receipt Date: 20080507
  Transmission Date: 20081010
  Serious: Yes (Other)
  Sender: FDA-Public Use
  Company Number: PHHY2008AU07287

PATIENT
  Age: 79 Year
  Sex: Female

DRUGS (7)
  1. FAMVIR [Suspect]
     Indication: HERPES ZOSTER
     Dates: start: 20020410, end: 20020416
  2. CANDESARTAN CILEXETIL [Suspect]
     Dates: end: 20020416
  3. INDAPAMIDE [Suspect]
     Indication: HERPES ZOSTER
     Dosage: 2.5 MG/DAY
     Route: 048
     Dates: end: 20020416
  4. ALENDRONATE SODIUM [Concomitant]
     Dosage: 70 MG WEEKLY
     Route: 048
  5. BUDESONIDE [Concomitant]
     Indication: ASTHMA
     Dosage: 800 MCG/DAY
  6. IPRATROPIUM BROMIDE [Concomitant]
     Indication: ASTHMA
     Dosage: 80 MCG/DAY
  7. SALBUTAMOL [Concomitant]
     Indication: ASTHMA
     Dosage: 400 MCG/DAY

REACTIONS (4)
  - DEHYDRATION [None]
  - HYPONATRAEMIA [None]
  - NAUSEA [None]
  - VOMITING [None]
